FAERS Safety Report 12410885 (Version 1)
Quarter: 2016Q2

REPORT INFORMATION
  Report Type: Spontaneous
  Country: US (occurrence: None)
  Receive Date: 20160526
  Receipt Date: 20160526
  Transmission Date: 20160815
  Serious: Yes (Hospitalization)
  Sender: FDA-Public Use
  Company Number: None

PATIENT
  Age: 81 Year
  Sex: Male
  Weight: 104.5 kg

DRUGS (1)
  1. AMIODARONE [Suspect]
     Active Substance: AMIODARONE
     Indication: ATRIAL FIBRILLATION
     Dosage: 01/01/1900 THRU 02/16/2016
     Route: 048
     Dates: end: 20160216

REACTIONS (5)
  - Haemoptysis [None]
  - Pulmonary alveolar haemorrhage [None]
  - Pneumonia [None]
  - Bronchitis [None]
  - Radiation pneumonitis [None]

NARRATIVE: CASE EVENT DATE: 20160216
